FAERS Safety Report 6705277-5 (Version None)
Quarter: 2010Q2

REPORT INFORMATION
  Report Type: 
  Country: None (occurrence: None)
  Receive Date: 20100430
  Receipt Date: 20100429
  Transmission Date: 20101027
  Serious: Yes (Death)
  Sender: FDA-Public Use
  Company Number: CN-ROCHE-700223

PATIENT
  Sex: Male

DRUGS (2)
  1. MYCOPHENOLATE MOFETIL [Suspect]
     Indication: RENAL TRANSPLANT
     Dosage: 500 MG IN THE MORNING AND 500 MG IN THE EVENING
     Route: 048
     Dates: start: 20040227
  2. FK506 [Concomitant]
     Indication: RENAL TRANSPLANT
     Dosage: DOSAGE WAS UNKNOWN
     Route: 048
     Dates: start: 20040227

REACTIONS (1)
  - BRAIN STEM HAEMORRHAGE [None]
